FAERS Safety Report 6936033-0 (Version None)
Quarter: 2010Q3

REPORT INFORMATION
  Report Type: 
  Country: None (occurrence: None)
  Receive Date: 20100819
  Receipt Date: 20100819
  Transmission Date: 20110219
  Serious: Yes (Hospitalization)
  Sender: FDA-Public Use
  Company Number: None

PATIENT
  Age: 60 Year
  Sex: Male
  Weight: 74 kg

DRUGS (8)
  1. DOCETAXEL [Suspect]
     Indication: NON-SMALL CELL LUNG CANCER
     Dosage: 140MG (75MG/M2) IV, Q DAY 1
     Route: 042
     Dates: start: 20100629
  2. GEMCITABINE [Suspect]
     Indication: NON-SMALL CELL LUNG CANCER
     Dosage: 1683MG900MG/M2IV, DAY 1, 8
     Route: 042
     Dates: start: 20100629
  3. GEMCITABINE [Suspect]
     Indication: NON-SMALL CELL LUNG CANCER
     Dosage: 1683MG900MG/M2IV, DAY 1, 8
     Route: 042
     Dates: start: 20100707
  4. LISINOPRIL [Concomitant]
  5. SIMVASTATIN [Concomitant]
  6. EZETIMIBE [Concomitant]
  7. LACTULOSE [Concomitant]
  8. LORAZEPAM [Concomitant]

REACTIONS (2)
  - HEADACHE [None]
  - HYPERTHERMIA MALIGNANT [None]
